FAERS Safety Report 10504577 (Version 2)
Quarter: 2014Q4

REPORT INFORMATION
  Report Type: Spontaneous
  Country: FR (occurrence: None)
  Receive Date: 20141006
  Receipt Date: 20141020
  Transmission Date: 20150528
  Serious: Yes (Hospitalization)
  Sender: FDA-Public Use
  Company Number: 2014FR0427

PATIENT
  Age: 11 Year
  Sex: Male

DRUGS (4)
  1. ORFADIN [Suspect]
     Active Substance: NITISINONE
     Indication: TYROSINAEMIA
     Dosage: 90 MG (90 MG, 1 IN 1 D), ORAL
     Route: 048
     Dates: start: 20121024
  2. HYDROSOL POLYVITAMINE (VITMAINS NOS) [Concomitant]
  3. EUPANTOL (PANTOPRAZOLE SODIUM (SESQUIHYDRATE) [Concomitant]
  4. ALDACTONE [Concomitant]
     Active Substance: SPIRONOLACTONE

REACTIONS (1)
  - Liver transplant [None]

NARRATIVE: CASE EVENT DATE: 20140907
